FAERS Safety Report 6045244-0 (Version None)
Quarter: 2009Q1

REPORT INFORMATION
  Report Type: 
  Country: None (occurrence: None)
  Receive Date: 20090121
  Receipt Date: 20090108
  Transmission Date: 20090719
  Serious: Yes (Other)
  Sender: FDA-Public Use
  Company Number: PHEH2009US00611

PATIENT
  Sex: Female

DRUGS (1)
  1. GENTEAL GEL (NVO) [Suspect]
     Dosage: UNK

REACTIONS (4)
  - CATARACT [None]
  - DRY EYE [None]
  - MACULAR DEGENERATION [None]
  - VISION BLURRED [None]
